FAERS Safety Report 6576337-7 (Version None)
Quarter: 2010Q1

REPORT INFORMATION
  Report Type: 
  Country: None (occurrence: None)
  Receive Date: 20100210
  Receipt Date: 20100202
  Transmission Date: 20100710
  Serious: Yes (Hospitalization)
  Sender: FDA-Public Use
  Company Number: ES-ALLERGAN-0917496US

PATIENT
  Age: 47 Year
  Sex: Female

DRUGS (1)
  1. CYCLOSPORINE UNK [Suspect]
     Indication: IMMUNOSUPPRESSION

REACTIONS (1)
  - NEUROENDOCRINE CARCINOMA OF THE SKIN [None]
